FAERS Safety Report 7589732-4 (Version None)
Quarter: 2011Q3

REPORT INFORMATION
  Report Type: 
  Country: None (occurrence: None)
  Receive Date: 20110705
  Receipt Date: 20110621
  Transmission Date: 20111222
  Serious: Yes (Other)
  Sender: FDA-Public Use
  Company Number: BR-BAYER-2011-053654

PATIENT
  Age: 76 Year
  Sex: Female

DRUGS (2)
  1. CIPROFLOXACIN HCL [Suspect]
     Dosage: 250 MG, BID
     Route: 048
     Dates: start: 20110520, end: 20110601
  2. CIPROFLOXACIN HCL [Suspect]
     Dosage: DOSE LESS THAN 500MG A DAY
     Route: 048
     Dates: start: 20110601

REACTIONS (1)
  - HYPERGLYCAEMIA [None]
